FAERS Safety Report 19132104 (Version 1)
Quarter: 2021Q2

REPORT INFORMATION
  Report Type: Spontaneous
  Country: NL (occurrence: NL)
  Receive Date: 20210413
  Receipt Date: 20210413
  Transmission Date: 20210717
  Serious: Yes (Other)
  Sender: FDA-Public Use
  Company Number: NL-TEVA-2021-NL-1899532

PATIENT
  Weight: 87 kg

DRUGS (5)
  1. METFORMINE HYDROCHLORIDE / BRAND NAME NOT SPECIFIED [Concomitant]
     Dosage: THERAPY START DATE AND END DATE : ASKED BUT UNKNOWN
  2. MONTELUKAST KAUWTABLET 4MG / BRAND NAME NOT SPECIFIED [Concomitant]
     Dosage: THERAPY START DATE AND END DATE : ASKED BUT UNKNOWN
  3. BUDESONIDE/FORMOTEROL INHP  200/6UG/DO / SYMBICORT TURBUHALER INHALPDR [Concomitant]
     Dosage: THERAPY START DATE AND END DATE : ASKED BUT UNKNOWN
  4. VERAPAMIL HYDROCHLORIDE / BRAND NAME NOT SPECIFIED [Suspect]
     Active Substance: VERAPAMIL HYDROCHLORIDE
     Indication: ARRHYTHMIA
     Dosage: 3X 80 MG, THERAPY END DATE : ASKED BUT UNKNOWN
     Route: 065
     Dates: start: 201702
  5. SALBUTAMOL INHALATIEPOEDER 200UG/DO / VENTOLIN DISKUS INHPDR 200MCG 60 [Concomitant]
     Dosage: THERAPY START DATE AND END DATE : ASKED BUT UNKNOWN

REACTIONS (3)
  - Oedema peripheral [Unknown]
  - Urticaria [Unknown]
  - Arrhythmia [Unknown]
